FAERS Safety Report 10072776 (Version 3)
Quarter: 2014Q2

REPORT INFORMATION
  Report Type: Spontaneous
  Country: US (occurrence: US)
  Receive Date: 20140411
  Receipt Date: 20140505
  Transmission Date: 20141212
  Serious: Yes (Other)
  Sender: FDA-Public Use
  Company Number: US-PFIZER INC-2014101473

PATIENT
  Age: 78 Year
  Sex: Female
  Weight: 38.55 kg

DRUGS (7)
  1. LYRICA [Suspect]
     Indication: BACK PAIN
     Dosage: 75 MG, 2X/DAY
     Dates: start: 2007
  2. LYRICA [Suspect]
     Indication: FIBROMYALGIA
  3. LYRICA [Suspect]
     Indication: INSOMNIA
  4. LYRICA [Suspect]
     Indication: MUSCLE SPASMS
  5. ASPIRIN [Concomitant]
     Dosage: 81 MG, DAILY
  6. MELOXICAM [Concomitant]
     Dosage: 15 MG, DAILY
  7. CELEXA [Concomitant]
     Dosage: UNK

REACTIONS (4)
  - Respiratory tract infection [Recovered/Resolved]
  - Sinusitis [Recovered/Resolved]
  - Diarrhoea [Unknown]
  - Vomiting [Unknown]
